FAERS Safety Report 12812763 (Version 1)
Quarter: 2016Q4

REPORT INFORMATION
  Report Type: Spontaneous
  Country: JP (occurrence: JP)
  Receive Date: 20161005
  Receipt Date: 20161005
  Transmission Date: 20170207
  Serious: Yes (Hospitalization)
  Sender: FDA-Public Use
  Company Number: JP-SA-2016SA181361

PATIENT
  Age: 62 Year
  Sex: Female

DRUGS (8)
  1. DOCETAXEL. [Suspect]
     Active Substance: DOCETAXEL
     Indication: PROPHYLAXIS
     Route: 065
     Dates: start: 200709
  2. CYCLOPHOSPHAMIDE. [Suspect]
     Active Substance: CYCLOPHOSPHAMIDE
     Indication: PROPHYLAXIS
     Route: 065
     Dates: start: 200709
  3. DOCETAXEL. [Suspect]
     Active Substance: DOCETAXEL
     Indication: BREAST CANCER
     Route: 065
     Dates: start: 200709
  4. 5-FU [Suspect]
     Active Substance: FLUOROURACIL
     Indication: BREAST CANCER
     Route: 065
     Dates: start: 200709
  5. CYCLOPHOSPHAMIDE. [Suspect]
     Active Substance: CYCLOPHOSPHAMIDE
     Indication: BREAST CANCER
     Route: 065
     Dates: start: 200709
  6. EPIRUBICIN [Suspect]
     Active Substance: EPIRUBICIN
     Indication: BREAST CANCER
     Route: 065
     Dates: start: 200709
  7. EPIRUBICIN [Suspect]
     Active Substance: EPIRUBICIN
     Indication: PROPHYLAXIS
     Route: 065
     Dates: start: 200709
  8. 5-FU [Suspect]
     Active Substance: FLUOROURACIL
     Indication: PROPHYLAXIS
     Route: 065
     Dates: start: 200709

REACTIONS (2)
  - Pyrexia [Unknown]
  - Organising pneumonia [Recovered/Resolved]
